FAERS Safety Report 13714075 (Version 5)
Quarter: 2018Q3

REPORT INFORMATION
  Report Type: Spontaneous
  Country: US (occurrence: US)
  Receive Date: 20170704
  Receipt Date: 20180803
  Transmission Date: 20181010
  Serious: Yes (Hospitalization, Other)
  Sender: FDA-Public Use
  Company Number: US-ACTELION-A-NJ2017-156191

PATIENT
  Age: 45 Year
  Sex: Female
  Weight: 74.83 kg

DRUGS (6)
  1. UPTRAVI [Suspect]
     Active Substance: SELEXIPAG
     Dosage: 1600 MCG, BID
     Route: 048
  2. UPTRAVI [Suspect]
     Active Substance: SELEXIPAG
     Indication: PULMONARY ARTERIAL HYPERTENSION
     Dosage: 1600 MCG, BID
     Route: 048
  3. UPTRAVI [Suspect]
     Active Substance: SELEXIPAG
     Dosage: 1400 MCG, BID
     Route: 048
  4. XARELTO [Concomitant]
     Active Substance: RIVAROXABAN
  5. ADCIRCA [Concomitant]
     Active Substance: TADALAFIL
  6. LETAIRIS [Concomitant]
     Active Substance: AMBRISENTAN

REACTIONS (21)
  - Transfusion [Unknown]
  - Lower limb fracture [Unknown]
  - Dyspnoea at rest [Unknown]
  - Oxygen saturation decreased [Unknown]
  - Chest pain [Unknown]
  - Fall [Unknown]
  - Bipolar disorder [Unknown]
  - Abdominal distension [Unknown]
  - Therapy non-responder [Unknown]
  - Presyncope [Unknown]
  - Stress [Unknown]
  - Vaginal haemorrhage [Unknown]
  - Heart rate decreased [Unknown]
  - Condition aggravated [Unknown]
  - Oxygen therapy [Unknown]
  - Palpitations [Unknown]
  - Hypotension [Unknown]
  - Pain in extremity [Unknown]
  - Depression [Unknown]
  - Dyspnoea exertional [Unknown]
  - Feeling of despair [Unknown]

NARRATIVE: CASE EVENT DATE: 201706
